FAERS Safety Report 9256955 (Version 2)
Quarter: 2013Q2

REPORT INFORMATION
  Report Type: Spontaneous
  Country: IT (occurrence: None)
  Receive Date: 20130424
  Receipt Date: 20130509
  Transmission Date: 20140414
  Serious: Yes (Life-Threatening)
  Sender: FDA-Public Use
  Company Number: NL01PV13.32644

PATIENT
  Age: 57 Year
  Sex: Male

DRUGS (1)
  1. LEVOCETIRIZINE DIHYDROCHLORIDE [Suspect]
     Indication: ASTHMA
     Route: 048
     Dates: start: 20130316, end: 20130316

REACTIONS (3)
  - Diplopia [None]
  - Road traffic accident [None]
  - Asthenia [None]
